FAERS Safety Report 12591745 (Version 2)
Quarter: 2016Q3

REPORT INFORMATION
  Report Type: Spontaneous
  Country: DE (occurrence: DE)
  Receive Date: 20160726
  Receipt Date: 20160803
  Transmission Date: 20161109
  Serious: Yes (Hospitalization)
  Sender: FDA-Public Use
  Company Number: DE-PULSION MEDICAL SYSTEMS SE-1055545

PATIENT
  Age: 51 Year
  Sex: Female
  Weight: 140 kg

DRUGS (1)
  1. INDOCYANINE GREEN FOR INJECTION USP, 25 MG [Suspect]
     Active Substance: INDOCYANINE GREEN
     Indication: LYMPHANGIOGRAM
     Route: 058
     Dates: start: 20160625, end: 20160625

REACTIONS (1)
  - Cholecystitis [Recovered/Resolved]

NARRATIVE: CASE EVENT DATE: 20160630
